FAERS Safety Report 4963014-9 (Version None)
Quarter: 2006Q2

REPORT INFORMATION
  Report Type: 
  Country: None (occurrence: None)
  Receive Date: 20060405
  Receipt Date: 20060323
  Transmission Date: 20061013
  Serious: Yes (Death, Hospitalization)
  Sender: FDA-Public Use
  Company Number: US-JNJFOC-20060205700

PATIENT
  Sex: Male
  Weight: 63.96 kg

DRUGS (6)
  1. DURAGESIC-100 [Suspect]
     Indication: CANCER PAIN
     Route: 062
  2. MS CONTIN [Concomitant]
     Indication: PAIN
  3. AVASTIN [Concomitant]
  4. CARBOPLATIN [Concomitant]
  5. NAPROXEN [Concomitant]
  6. NORVASC [Concomitant]

REACTIONS (25)
  - BLOOD ALBUMIN INCREASED [None]
  - BLOOD CALCIUM INCREASED [None]
  - CACHEXIA [None]
  - CHILLS [None]
  - CHRONIC OBSTRUCTIVE PULMONARY DISEASE [None]
  - DEHYDRATION [None]
  - DIAPHRAGMATIC DISORDER [None]
  - DIARRHOEA [None]
  - DRY SKIN [None]
  - DRY THROAT [None]
  - GASTROINTESTINAL HAEMORRHAGE [None]
  - GENERAL PHYSICAL HEALTH DETERIORATION [None]
  - NAUSEA [None]
  - NEOPLASM MALIGNANT [None]
  - NIGHT SWEATS [None]
  - PAIN [None]
  - PYREXIA [None]
  - STARVATION [None]
  - TACHYCARDIA [None]
  - TACHYPNOEA [None]
  - URINE OUTPUT DECREASED [None]
  - VOMITING [None]
  - WEIGHT DECREASED [None]
  - WEIGHT INCREASED [None]
  - WHEEZING [None]
